FAERS Safety Report 11746424 (Version 1)
Quarter: 2015Q4

REPORT INFORMATION
  Report Type: Other
  Country: GB (occurrence: GB)
  Receive Date: 20151117
  Receipt Date: 20151117
  Transmission Date: 20160304
  Serious: Yes (Other)
  Sender: FDA-Public Use
  Company Number: GB-MYLANLABS-2015M1038615

PATIENT

DRUGS (5)
  1. ATORVASTATIN [Concomitant]
     Active Substance: ATORVASTATIN
     Dosage: 1 DF, QD
     Dates: start: 20141017
  2. OMEPRAZOLE. [Concomitant]
     Active Substance: OMEPRAZOLE
     Dosage: 1 DF, QD
     Dates: start: 20141017
  3. ZOPICLONE [Concomitant]
     Active Substance: ZOPICLONE
     Dosage: UNK (TAKE ONE OR TWO AT NIGHT FOR A FEW NIGHTS, THEN...)
     Dates: start: 20151022
  4. MIRTAZAPINE. [Suspect]
     Active Substance: MIRTAZAPINE
     Dosage: UNK
     Dates: start: 20151002
  5. FLUOXETINE [Concomitant]
     Active Substance: FLUOXETINE HYDROCHLORIDE
     Dosage: 1 DF, QD
     Dates: start: 20151022

REACTIONS (4)
  - Suicidal ideation [Unknown]
  - Circulatory collapse [Recovered/Resolved]
  - Condition aggravated [Unknown]
  - Bradycardia [Unknown]

NARRATIVE: CASE EVENT DATE: 20151022
